FAERS Safety Report 18311502 (Version 1)
Quarter: 2020Q3

REPORT INFORMATION
  Report Type: Spontaneous
  Country: US (occurrence: US)
  Receive Date: 20200924
  Receipt Date: 20200924
  Transmission Date: 20201103
  Serious: Yes (Other)
  Sender: FDA-Public Use
  Company Number: None

PATIENT
  Age: 3 Year
  Sex: Male
  Weight: 13.5 kg

DRUGS (5)
  1. ENALAPRIL [Concomitant]
     Active Substance: ENALAPRIL
  2. IRON [Concomitant]
     Active Substance: IRON
  3. AMLODIPINE [Concomitant]
     Active Substance: AMLODIPINE BESYLATE
  4. NITROFURANTOIN ORAL SUSPENSION, USP 25MG/5ML [Suspect]
     Active Substance: NITROFURANTOIN
     Indication: URINARY TRACT INFECTION
     Dosage: ?          QUANTITY:2.8 ML;?
     Route: 048
     Dates: start: 20200901, end: 20200918
  5. MIRALAX [Concomitant]
     Active Substance: POLYETHYLENE GLYCOL 3350

REACTIONS (7)
  - Hallucination [None]
  - Sleep disorder [None]
  - Psychotic disorder [None]
  - Abnormal behaviour [None]
  - Crying [None]
  - Fatigue [None]
  - Anger [None]

NARRATIVE: CASE EVENT DATE: 20200915
